FAERS Safety Report 7011449-5 (Version None)
Quarter: 2010Q3

REPORT INFORMATION
  Report Type: 
  Country: None (occurrence: None)
  Receive Date: 20100922
  Receipt Date: 20100922
  Transmission Date: 20110219
  Serious: Yes (Hospitalization)
  Sender: FDA-Public Use
  Company Number: None

PATIENT
  Sex: Male
  Weight: 76.4 kg

DRUGS (2)
  1. NAB-PACILTAXEL 1000MG/M2 [Suspect]
     Indication: LUNG NEOPLASM MALIGNANT
     Dosage: 200 MG DAY 1, 8 + 15 IV
     Route: 042
     Dates: start: 20100907, end: 20100914
  2. CARBOPLATIN [Suspect]
     Indication: LUNG NEOPLASM MALIGNANT
     Dosage: 780 MG DAY 1 ONLY IV
     Route: 042
     Dates: start: 20100907, end: 20100907

REACTIONS (4)
  - ANAEMIA [None]
  - NEUTROPHIL COUNT ABNORMAL [None]
  - PYREXIA [None]
  - THROMBOCYTOPENIA [None]
